FAERS Safety Report 9605722 (Version 2)
Quarter: 2013Q4

REPORT INFORMATION
  Report Type: Spontaneous
  Country: GB (occurrence: GB)
  Receive Date: 20131008
  Receipt Date: 20131008
  Transmission Date: 20140711
  Serious: Yes (Hospitalization, Other)
  Sender: FDA-Public Use
  Company Number: GB-ABBVIE-13X-167-1072923-00

PATIENT
  Age: 77 Year
  Sex: Male

DRUGS (6)
  1. LEVOTHYROXINE [Suspect]
     Indication: HYPOTHYROIDISM
  2. ISOPTIN [Interacting]
     Indication: ATRIAL FIBRILLATION
     Route: 065
  3. WARFARIN [Interacting]
     Indication: ATRIAL FIBRILLATION
     Dosage: 8 OR 9 MG DAILY
  4. CLENIL MODULITE [Interacting]
     Indication: ASTHMA
     Route: 055
     Dates: start: 20130219
  5. TAMSULOSIN [Interacting]
     Indication: PROSTATOMEGALY
  6. OCUVITE [Concomitant]
     Indication: PRODUCT USED FOR UNKNOWN INDICATION

REACTIONS (12)
  - Cerebrovascular accident [Unknown]
  - International normalised ratio decreased [Unknown]
  - Haemorrhage [Unknown]
  - Drug interaction [Unknown]
  - Therapeutic response unexpected [Unknown]
  - Cardiomegaly [Unknown]
  - Pericardial effusion [Unknown]
  - Pleural effusion [Unknown]
  - Cerebral ischaemia [Unknown]
  - Intracranial aneurysm [Unknown]
  - Cerebellar ischaemia [Unknown]
  - Demyelination [Unknown]
